FAERS Safety Report 19460106 (Version 3)
Quarter: 2021Q3

REPORT INFORMATION
  Report Type: Spontaneous
  Country: US (occurrence: US)
  Receive Date: 20210625
  Receipt Date: 20210908
  Transmission Date: 20211014
  Serious: No
  Sender: FDA-Public Use
  Company Number: US-SA-2021SA208530

PATIENT
  Age: 41 Year
  Sex: Female

DRUGS (25)
  1. BUDESONIDE. [Concomitant]
     Active Substance: BUDESONIDE
  2. TRAMADOL. [Concomitant]
     Active Substance: TRAMADOL
  3. SPIRIVA [Concomitant]
     Active Substance: TIOTROPIUM BROMIDE MONOHYDRATE
  4. TIZANIDINE. [Concomitant]
     Active Substance: TIZANIDINE
  5. WIXELA INHUB [Concomitant]
     Active Substance: FLUTICASONE PROPIONATE\SALMETEROL XINAFOATE
  6. DICYCLOMINE [Concomitant]
     Active Substance: DICYCLOMINE HYDROCHLORIDE
     Indication: IRRITABLE BOWEL SYNDROME
  7. ZYRTEC?D [Concomitant]
     Active Substance: CETIRIZINE HYDROCHLORIDE\PSEUDOEPHEDRINE HYDROCHLORIDE
  8. NORLYDA [Concomitant]
     Active Substance: NORETHINDRONE
  9. EPINEPHRINE. [Concomitant]
     Active Substance: EPINEPHRINE
  10. ANALPRAM HC [Concomitant]
     Active Substance: HYDROCORTISONE ACETATE\PRAMOXINE HYDROCHLORIDE
  11. PROPAFENONE. [Concomitant]
     Active Substance: PROPAFENONE
  12. TRAMADOL HCL [Concomitant]
     Active Substance: TRAMADOL HYDROCHLORIDE
  13. METHYLPRED [Concomitant]
     Active Substance: METHYLPREDNISOLONE
  14. SYNTHROID [Concomitant]
     Active Substance: LEVOTHYROXINE SODIUM
  15. VIRTUSSIN AC [Concomitant]
     Active Substance: CODEINE PHOSPHATE\GUAIFENESIN
  16. CELECOXIB. [Concomitant]
     Active Substance: CELECOXIB
     Dosage: 300 MG
  17. DIGOXIN. [Concomitant]
     Active Substance: DIGOXIN
  18. MONTELUKAST [Concomitant]
     Active Substance: MONTELUKAST SODIUM
  19. DUPIXENT [Suspect]
     Active Substance: DUPILUMAB
     Indication: ASTHMA
     Dosage: 300 MG, QOW
     Route: 058
     Dates: start: 20210414
  20. OMEPRAZOLE. [Concomitant]
     Active Substance: OMEPRAZOLE
  21. PANTOPRAZOLE [Concomitant]
     Active Substance: PANTOPRAZOLE
     Indication: GASTROOESOPHAGEAL REFLUX DISEASE
     Dosage: 300 MG
  22. SERTRALINE [Concomitant]
     Active Substance: SERTRALINE HYDROCHLORIDE
  23. PREDNISONE. [Concomitant]
     Active Substance: PREDNISONE
     Indication: RHINITIS ALLERGIC
     Dosage: 300MG
  24. AMOXI CLAV [Concomitant]
     Active Substance: AMOXICILLIN\CLAVULANATE POTASSIUM
  25. SUPREP BOWEL PREP [Concomitant]
     Active Substance: MAGNESIUM SULFATE\POTASSIUM SULFATE\SODIUM SULFATE

REACTIONS (3)
  - Infection [Not Recovered/Not Resolved]
  - Asthma [Not Recovered/Not Resolved]
  - Nasopharyngitis [Not Recovered/Not Resolved]

NARRATIVE: CASE EVENT DATE: 202106
